FAERS Safety Report 10467192 (Version 1)
Quarter: 2014Q3

REPORT INFORMATION
  Report Type: Spontaneous
  Country: JP (occurrence: JP)
  Receive Date: 20140922
  Receipt Date: 20140922
  Transmission Date: 20150326
  Serious: Yes (Death, Life-Threatening, Hospitalization, Other)
  Sender: FDA-Public Use
  Company Number: PHHY2003JP005419

PATIENT
  Age: 37 Year
  Sex: Male

DRUGS (4)
  1. PREDNISOLONE. [Concomitant]
     Active Substance: PREDNISOLONE
     Dosage: UNK UKN, UNK
     Dates: start: 20110313
  2. TACROLIMUS. [Concomitant]
     Active Substance: TACROLIMUS
     Dosage: UNK UKN, UNK
     Dates: start: 20110313
  3. BASILIXIMAB [Suspect]
     Active Substance: BASILIXIMAB
     Indication: PROPHYLAXIS AGAINST TRANSPLANT REJECTION
     Dosage: UNK UKN, UNK
     Dates: start: 20030313
  4. MYCOPHENOLATE MOFETIL. [Concomitant]
     Active Substance: MYCOPHENOLATE MOFETIL
     Dosage: UNK UKN, UNK
     Dates: start: 20110313

REACTIONS (9)
  - Decreased appetite [Fatal]
  - Gastroenteritis viral [Fatal]
  - Large intestinal ulcer [Fatal]
  - Blood creatinine increased [Unknown]
  - Epstein-Barr virus associated lymphoproliferative disorder [Fatal]
  - Diarrhoea [Fatal]
  - Pyrexia [Fatal]
  - Lymphatic system neoplasm [Fatal]
  - Abdominal pain [Fatal]
